FAERS Safety Report 9053832 (Version 1)
Quarter: 2013Q1

REPORT INFORMATION
  Report Type: Report from Study
  Country: GB (occurrence: GB)
  Receive Date: 20130207
  Receipt Date: 20130207
  Transmission Date: 20140127
  Serious: Yes (Other)
  Sender: FDA-Public Use
  Company Number: GB-GLAXOSMITHKLINE-B0863326A

PATIENT
  Sex: 0

DRUGS (2)
  1. LAPATINIB [Suspect]
     Indication: BREAST CANCER
     Route: 065
  2. TRASTUZUMAB [Concomitant]

REACTIONS (2)
  - Pancytopenia [Unknown]
  - Toxicity to various agents [Unknown]
